FAERS Safety Report 4840725-7 (Version None)
Quarter: 2005Q4

REPORT INFORMATION
  Report Type: 
  Country: None (occurrence: None)
  Receive Date: 20051130
  Receipt Date: 20051121
  Transmission Date: 20060501
  Serious: Yes (Hospitalization)
  Sender: FDA-Public Use
  Company Number: JP-JNJFOC-20051102961

PATIENT
  Sex: Male
  Weight: 53 kg

DRUGS (10)
  1. REMICADE [Suspect]
     Route: 042
  2. REMICADE [Suspect]
     Route: 042
  3. REMICADE [Suspect]
     Route: 042
  4. REMICADE [Suspect]
     Indication: CROHN'S DISEASE
     Route: 042
  5. AZANIN [Suspect]
     Route: 048
  6. AZANIN [Suspect]
     Indication: DRUG USE FOR UNKNOWN INDICATION
     Route: 048
  7. SALAZOPYRIN [Concomitant]
     Dosage: 4 TAB
     Route: 048
  8. PENTASA [Concomitant]
     Dosage: 12 TAB
     Route: 048
  9. ELENTAL [Concomitant]
     Route: 048
  10. ELENTAL [Concomitant]
     Route: 048

REACTIONS (1)
  - TUBERCULOSIS [None]
